FAERS Safety Report 17135217 (Version 1)
Quarter: 2019Q4

REPORT INFORMATION
  Report Type: Spontaneous
  Country: MY (occurrence: MY)
  Receive Date: 20191210
  Receipt Date: 20191210
  Transmission Date: 20200122
  Serious: Yes (Other)
  Sender: FDA-Public Use
  Company Number: NVSC2019MY061035

PATIENT
  Age: 39 Year
  Sex: Male

DRUGS (1)
  1. TRILEPTAL [Suspect]
     Active Substance: OXCARBAZEPINE
     Indication: SEIZURE
     Dosage: 150 MG, Q12H
     Route: 048

REACTIONS (3)
  - Oral mucosal blistering [Recovering/Resolving]
  - Rash [Recovering/Resolving]
  - Lip ulceration [Recovering/Resolving]
